FAERS Safety Report 10257839 (Version 1)
Quarter: 2014Q2

REPORT INFORMATION
  Report Type: Spontaneous
  Country: US (occurrence: None)
  Receive Date: 20140623
  Receipt Date: 20140623
  Transmission Date: 20141212
  Serious: Yes (Hospitalization)
  Sender: FDA-Public Use
  Company Number: None

PATIENT
  Age: 32 Year
  Sex: Female
  Weight: 62.6 kg

DRUGS (1)
  1. BACLOFEN [Suspect]
     Indication: TRIGEMINAL NEURALGIA
     Dosage: 3 PILLS/ 30 MG THREE TIMES DAILY TAKEN BY MOUTH
     Route: 048
     Dates: start: 20140316, end: 20140518

REACTIONS (16)
  - Insomnia [None]
  - Euphoric mood [None]
  - Confusional state [None]
  - Agitation [None]
  - Hallucination [None]
  - Coordination abnormal [None]
  - Tremor [None]
  - Ataxia [None]
  - Constipation [None]
  - Intestinal perforation [None]
  - Haemorrhage [None]
  - Vomiting [None]
  - Mania [None]
  - Dehydration [None]
  - Intestinal obstruction [None]
  - Mental disorder [None]
